FAERS Safety Report 7200356-0 (Version None)
Quarter: 2010Q4

REPORT INFORMATION
  Report Type: 
  Country: None (occurrence: None)
  Receive Date: 20101228
  Receipt Date: 20101213
  Transmission Date: 20110411
  Serious: Yes (Death, Life-Threatening, Hospitalization, Disabling)
  Sender: FDA-Public Use
  Company Number: FR-SANOFI-AVENTIS-2010SA075170

PATIENT
  Age: 71 Year
  Sex: Female

DRUGS (6)
  1. CORTANCYL [Suspect]
     Indication: RHEUMATOID ARTHRITIS
     Route: 048
     Dates: end: 20100825
  2. ARAVA [Suspect]
     Indication: RHEUMATOID ARTHRITIS
     Route: 048
     Dates: end: 20100825
  3. ORENCIA [Suspect]
     Indication: RHEUMATOID ARTHRITIS
     Dosage: DOSE:1 UNIT(S)
     Route: 042
     Dates: end: 20100825
  4. TRIATEC [Concomitant]
     Route: 048
     Dates: end: 20100825
  5. LYSANXIA [Concomitant]
     Indication: ANXIETY
     Route: 048
     Dates: end: 20100825
  6. ESOMEPRAZOLE [Concomitant]
     Route: 048
     Dates: end: 20100825

REACTIONS (2)
  - PNEUMONIA [None]
  - SEPTIC SHOCK [None]
